FAERS Safety Report 15247372 (Version 1)
Quarter: 2018Q3

REPORT INFORMATION
  Report Type: Spontaneous
  Country: US (occurrence: US)
  Receive Date: 20180807
  Receipt Date: 20180807
  Transmission Date: 20181010
  Serious: Yes (Life-Threatening, Hospitalization, Other)
  Sender: FDA-Public Use
  Company Number: US-AUROBINDO-AUR-APL-2018-038113

PATIENT
  Age: 58 Year
  Sex: Female

DRUGS (1)
  1. GLIMEPIRIDE TABLET [Suspect]
     Active Substance: GLIMEPIRIDE
     Indication: PRODUCT USED FOR UNKNOWN INDICATION
     Dosage: UNK
     Route: 065

REACTIONS (3)
  - Loss of consciousness [Recovered/Resolved]
  - Hypoglycaemia [Recovered/Resolved]
  - Accidental exposure to product [Recovered/Resolved]
